FAERS Safety Report 4728122-6 (Version None)
Quarter: 2005Q3

REPORT INFORMATION
  Report Type: 
  Country: None (occurrence: None)
  Receive Date: 20050728
  Receipt Date: 20050728
  Transmission Date: 20060218
  Serious: Yes (Hospitalization, Disabling)
  Sender: FDA-Public Use
  Company Number: None

PATIENT
  Age: 46 Year
  Sex: Female
  Weight: 95.2554 kg

DRUGS (2)
  1. SKELAXIN [Suspect]
     Indication: BONE DISORDER
     Dosage: 1 PILL 3 TIMES
  2. SKELAXIN [Suspect]
     Indication: MUSCLE RELAXANT THERAPY
     Dosage: 1 PILL 3 TIMES

REACTIONS (3)
  - ABNORMAL SENSATION IN EYE [None]
  - EYE HAEMORRHAGE [None]
  - HEADACHE [None]
